FAERS Safety Report 21147532 (Version 2)
Quarter: 2022Q4

REPORT INFORMATION
  Report Type: Spontaneous
  Country: FR (occurrence: FR)
  Receive Date: 20220729
  Receipt Date: 20221121
  Transmission Date: 20230113
  Serious: Yes (Death, Other)
  Sender: FDA-Public Use
  Company Number: None

PATIENT

DRUGS (2)
  1. RETROVIR [Suspect]
     Active Substance: ZIDOVUDINE
     Indication: Prophylaxis against HIV infection
     Dosage: 2 MG/KG, BID, (2 MG/KG/12H DILUTED 1/10.)
     Route: 048
     Dates: start: 20220530, end: 20220612
  2. EMTRICITABINE\RILPIVIRINE\TENOFOVIR DISOPROXIL FUMARATE [Suspect]
     Active Substance: EMTRICITABINE\RILPIVIRINE\TENOFOVIR DISOPROXIL FUMARATE
     Indication: HIV infection
     Dosage: UNK
     Route: 064

REACTIONS (1)
  - Necrotising enterocolitis neonatal [Fatal]

NARRATIVE: CASE EVENT DATE: 20220610
